FAERS Safety Report 6543419-5 (Version None)
Quarter: 2010Q1

REPORT INFORMATION
  Report Type: 
  Country: None (occurrence: None)
  Receive Date: 20100113
  Receipt Date: 20091125
  Transmission Date: 20100710
  Serious: Yes (Other)
  Sender: FDA-Public Use
  Company Number: E-09-482

PATIENT
  Sex: Female

DRUGS (1)
  1. CLONIDINE [Suspect]

REACTIONS (1)
  - HYPOTENSION [None]
